FAERS Safety Report 5221731-X (Version None)
Quarter: 2007Q1

REPORT INFORMATION
  Report Type: 
  Country: None (occurrence: None)
  Receive Date: 20070129
  Receipt Date: 20070124
  Transmission Date: 20070707
  Serious: Yes (Death, Life-Threatening)
  Sender: FDA-Public Use
  Company Number: JP-AVENTIS-200612707JP

PATIENT
  Age: 63 Year
  Sex: Male
  Weight: 62 kg

DRUGS (9)
  1. TAXOTERE [Suspect]
     Indication: OESOPHAGEAL CARCINOMA
     Route: 042
     Dates: start: 20060718, end: 20060807
  2. FLUOROURACIL [Suspect]
     Indication: OESOPHAGEAL CARCINOMA
     Route: 042
     Dates: start: 20060718, end: 20060811
  3. RANDA [Suspect]
     Indication: OESOPHAGEAL CARCINOMA
     Route: 042
     Dates: start: 20060718, end: 20060811
  4. DECADRON [Concomitant]
     Indication: CHEMOTHERAPY
     Route: 042
     Dates: start: 20060718, end: 20060811
  5. KYTRIL                             /01178101/ [Concomitant]
     Indication: CHEMOTHERAPY
     Route: 042
     Dates: start: 20060718, end: 20060811
  6. GASTER [Concomitant]
     Indication: CHEMOTHERAPY
     Route: 042
     Dates: start: 20060718, end: 20060811
  7. PANSPORIN [Concomitant]
     Indication: PYREXIA
     Route: 042
     Dates: start: 20060810, end: 20060811
  8. NEU-UP [Concomitant]
     Indication: WHITE BLOOD CELL COUNT DECREASED
     Route: 058
     Dates: start: 20060810, end: 20060819
  9. UNASYN ORAL                        /00903601/ [Concomitant]
     Indication: PYREXIA
     Route: 042
     Dates: start: 20060814, end: 20060819

REACTIONS (7)
  - DIARRHOEA [None]
  - DISSEMINATED INTRAVASCULAR COAGULATION [None]
  - DRUG ERUPTION [None]
  - PANCYTOPENIA [None]
  - PULMONARY EMBOLISM [None]
  - RASH [None]
  - STOMATITIS [None]
